FAERS Safety Report 20426839 (Version 1)
Quarter: 2022Q1

REPORT INFORMATION
  Report Type: Report from Study
  Country: US (occurrence: US)
  Receive Date: 20220204
  Receipt Date: 20220204
  Transmission Date: 20220423
  Serious: No
  Sender: FDA-Public Use
  Company Number: US-EXELIXIS-CABO-21046064

PATIENT
  Sex: Male

DRUGS (3)
  1. COMETRIQ [Suspect]
     Active Substance: CABOZANTINIB S-MALATE
     Indication: Thyroid cancer
     Dosage: 100 MG, QD (1 X 80 + 1 X 20MG)
     Dates: start: 202103
  2. METOPROLOL [Concomitant]
     Active Substance: METOPROLOL
     Dosage: UNK
  3. LEVOTHYROXINE [Concomitant]
     Active Substance: LEVOTHYROXINE
     Dosage: UNK

REACTIONS (7)
  - Dry mouth [Unknown]
  - Glossitis [Unknown]
  - Ageusia [Unknown]
  - Diarrhoea [Unknown]
  - Dysphonia [Unknown]
  - Fatigue [Unknown]
  - Blood pressure diastolic decreased [Unknown]
